FAERS Safety Report 8348081-7 (Version None)
Quarter: 2012Q2

REPORT INFORMATION
  Report Type: 
  Country: None (occurrence: None)
  Receive Date: 20120509
  Receipt Date: 20120502
  Transmission Date: 20120825
  Serious: Yes (Other)
  Sender: FDA-Public Use
  Company Number: US-JNJFOC-20120503771

PATIENT
  Sex: Male
  Weight: 90.72 kg

DRUGS (11)
  1. COZAAR [Concomitant]
  2. XARELTO [Suspect]
     Indication: THROMBOSIS PROPHYLAXIS
     Route: 048
  3. LACTULOSE [Concomitant]
  4. PROTONIX [Concomitant]
  5. FLUCONAZOLE [Concomitant]
  6. PERCOCET [Concomitant]
  7. ACETAMINOPHEN [Concomitant]
  8. M.V.I. [Concomitant]
  9. ZOCOR [Concomitant]
  10. HYDROCHLOROTHIAZIDE [Concomitant]
  11. BENADRYL [Concomitant]

REACTIONS (1)
  - DEEP VEIN THROMBOSIS [None]
